FAERS Safety Report 8269991-5 (Version None)
Quarter: 2012Q2

REPORT INFORMATION
  Report Type: 
  Country: None (occurrence: None)
  Receive Date: 20120410
  Receipt Date: 20120406
  Transmission Date: 20120825
  Serious: Yes (Other)
  Sender: FDA-Public Use
  Company Number: US-JNJFOC-20120209708

PATIENT
  Sex: Male
  Weight: 39.01 kg

DRUGS (2)
  1. RISPERIDONE [Suspect]
     Route: 048
     Dates: start: 20110101
  2. RISPERIDONE [Suspect]
     Indication: BIPOLAR DISORDER
     Route: 048
     Dates: start: 20040101

REACTIONS (4)
  - INTENTIONAL DRUG MISUSE [None]
  - DYSKINESIA [None]
  - ATTENTION DEFICIT/HYPERACTIVITY DISORDER [None]
  - TONGUE SPASM [None]
